FAERS Safety Report 6373620-5 (Version None)
Quarter: 2009Q3

REPORT INFORMATION
  Report Type: 
  Country: None (occurrence: None)
  Receive Date: 20090924
  Receipt Date: 20090911
  Transmission Date: 20100115
  Serious: Yes (Other)
  Sender: FDA-Public Use
  Company Number: US-PFIZER INC-2009273082

PATIENT
  Sex: Female
  Weight: 74.83 kg

DRUGS (2)
  1. ZOLOFT [Suspect]
     Dosage: 100 MG, 1X/DAY
     Route: 048
  2. CHANTIX [Suspect]
     Indication: SMOKING CESSATION THERAPY
     Dosage: 0.5 MG, 2X/DAY
     Route: 048
     Dates: start: 20090831

REACTIONS (11)
  - APATHY [None]
  - BLOOD CHOLESTEROL INCREASED [None]
  - BLOOD GLUCOSE INCREASED [None]
  - CHRONIC OBSTRUCTIVE PULMONARY DISEASE [None]
  - DEPRESSION [None]
  - HYPERTONIC BLADDER [None]
  - LETHARGY [None]
  - MUSCULOSKELETAL DISCOMFORT [None]
  - SCIATIC NERVE INJURY [None]
  - SEDATION [None]
  - SOMNOLENCE [None]
